FAERS Safety Report 7557414-0 (Version None)
Quarter: 2011Q2

REPORT INFORMATION
  Report Type: 
  Country: None (occurrence: None)
  Receive Date: 20110620
  Receipt Date: 20110607
  Transmission Date: 20111010
  Serious: Yes (Other)
  Sender: FDA-Public Use
  Company Number: PHHY2011US51340

PATIENT
  Sex: Female

DRUGS (1)
  1. AFINITOR [Suspect]
     Indication: MALIGNANT NEOPLASM OF ISLETS OF LANGERHANS
     Dosage: 10 MGD AILY
     Route: 048

REACTIONS (4)
  - RENAL DISORDER [None]
  - PERSONALITY CHANGE [None]
  - EPISTAXIS [None]
  - BLADDER DISORDER [None]
